FAERS Safety Report 26140256 (Version 1)
Quarter: 2025Q4

REPORT INFORMATION
  Report Type: Spontaneous
  Country: US (occurrence: None)
  Receive Date: 20251210
  Receipt Date: 20251210
  Transmission Date: 20260118
  Serious: Yes (Hospitalization)
  Sender: FDA-CTU
  Company Number: None

PATIENT
  Sex: Male

DRUGS (8)
  1. ELTROMBOPAG [Suspect]
     Active Substance: ELTROMBOPAG
     Indication: Mantle cell lymphoma
     Dosage: FREQUENCY : DAILY;
     Route: 048
     Dates: start: 20251115
  2. ALBUTEROL AER HFA [Concomitant]
  3. MULTIPLE VIT [Concomitant]
  4. PREDNISONE [Concomitant]
     Active Substance: PREDNISONE
  5. PRILOSEC OTC [Concomitant]
     Active Substance: OMEPRAZOLE MAGNESIUM
  6. TADALAFIL [Concomitant]
     Active Substance: TADALAFIL
  7. TAMSULOSIN [Concomitant]
     Active Substance: TAMSULOSIN
  8. TRAMADOL HCL [Concomitant]
     Active Substance: TRAMADOL HYDROCHLORIDE

REACTIONS (4)
  - Platelet count decreased [None]
  - Product dose omission issue [None]
  - Blood viscosity increased [None]
  - Cystitis [None]
